FAERS Safety Report 6535925-4 (Version None)
Quarter: 2010Q1

REPORT INFORMATION
  Report Type: 
  Country: None (occurrence: None)
  Receive Date: 20100113
  Receipt Date: 20100108
  Transmission Date: 20100710
  Serious: Yes (Hospitalization)
  Sender: FDA-Public Use
  Company Number: A0817456A

PATIENT
  Age: 42 Year
  Sex: Male

DRUGS (11)
  1. PROMACTA [Suspect]
     Indication: IDIOPATHIC THROMBOCYTOPENIC PURPURA
     Dosage: 50MCG PER DAY
     Route: 048
     Dates: start: 20090601, end: 20090701
  2. PREDNISONE [Concomitant]
  3. CYCLOSPORINE [Concomitant]
  4. DANAZOL [Concomitant]
  5. SEPTRA [Concomitant]
  6. ACYCLOVIR [Concomitant]
  7. ASPIRIN [Concomitant]
     Dosage: 81MG PER DAY
  8. THYROID REPLACEMENT [Concomitant]
  9. NEXIUM [Concomitant]
  10. VINCRISTINE [Concomitant]
     Route: 042
     Dates: start: 20090605
  11. PREDNISONE [Concomitant]
     Dosage: 3MG PER DAY

REACTIONS (17)
  - COMPUTERISED TOMOGRAM HEAD [None]
  - FATIGUE [None]
  - HELICOBACTER INFECTION [None]
  - INSOMNIA [None]
  - INTERMITTENT CLAUDICATION [None]
  - MICTURITION FREQUENCY DECREASED [None]
  - MUSCLE SPASMS [None]
  - PAIN IN EXTREMITY [None]
  - PERIPHERAL ARTERIAL OCCLUSIVE DISEASE [None]
  - PLATELET COUNT INCREASED [None]
  - SCAR [None]
  - SKIN LACERATION [None]
  - SLEEP DISORDER [None]
  - SPLENECTOMY [None]
  - THROMBOCYTOSIS [None]
  - VASODILATATION [None]
  - WEIGHT INCREASED [None]
